FAERS Safety Report 5055523-1 (Version None)
Quarter: 2006Q3

REPORT INFORMATION
  Report Type: 
  Country: None (occurrence: None)
  Receive Date: 20060717
  Receipt Date: 20060717
  Transmission Date: 20061208
  Serious: Yes (Hospitalization)
  Sender: FDA-Public Use
  Company Number: None

PATIENT
  Sex: Female

DRUGS (4)
  1. AVASTIN [Suspect]
     Indication: RENAL CELL CARCINOMA STAGE UNSPECIFIED
     Dosage: 820 MG IV
     Route: 042
     Dates: start: 20060710
  2. TOPROL-XL [Concomitant]
  3. LEXAPRO [Concomitant]
  4. ACIPHEX [Concomitant]

REACTIONS (2)
  - ABDOMINAL PAIN [None]
  - BODY TEMPERATURE INCREASED [None]
